FAERS Safety Report 12683493 (Version 3)
Quarter: 2016Q3

REPORT INFORMATION
  Report Type: Spontaneous
  Country: US (occurrence: US)
  Receive Date: 20160825
  Receipt Date: 20160916
  Transmission Date: 20161109
  Serious: No
  Sender: FDA-Public Use
  Company Number: US-VERTEX PHARMACEUTICALS-2016-004996

PATIENT
  Age: 25 Year
  Sex: Female

DRUGS (4)
  1. COLISTIN [Concomitant]
     Active Substance: COLISTIN
  2. ORKAMBI [Suspect]
     Active Substance: IVACAFTOR\LUMACAFTOR
     Indication: CYSTIC FIBROSIS
     Dosage: 200MG-125MG, BID
     Route: 048
     Dates: start: 20151201
  3. SODIUM CHLORIDE. [Concomitant]
     Active Substance: SODIUM CHLORIDE
  4. AQUADEKS [Concomitant]
     Active Substance: MINERALS\VITAMINS

REACTIONS (4)
  - Nasopharyngitis [Not Recovered/Not Resolved]
  - Pulmonary function test decreased [Recovered/Resolved]
  - Productive cough [Unknown]
  - Treatment noncompliance [Unknown]

NARRATIVE: CASE EVENT DATE: 201609
